FAERS Safety Report 9384186 (Version 2)
Quarter: 2013Q3

REPORT INFORMATION
  Report Type: Spontaneous
  Country: US (occurrence: US)
  Receive Date: 20130705
  Receipt Date: 20130731
  Transmission Date: 20140515
  Serious: No
  Sender: FDA-Public Use
  Company Number: US-ASTRAZENECA-2013SE49819

PATIENT
  Age: 63 Year
  Sex: Male
  Weight: 90.7 kg

DRUGS (5)
  1. BRILINTA [Suspect]
     Indication: CORONARY ARTERY DISEASE
     Route: 048
     Dates: start: 20130607
  2. BRILINTA [Suspect]
     Indication: ACUTE MYOCARDIAL INFARCTION
     Route: 048
     Dates: start: 20130607
  3. CLONAZEPAM [Concomitant]
     Indication: ANXIETY
     Route: 048
  4. LOPRESSOR [Concomitant]
     Indication: HYPERTENSION
     Route: 048
  5. GLUCOPHAGE [Concomitant]
     Route: 048

REACTIONS (1)
  - Haemorrhoids [Recovered/Resolved]
